FAERS Safety Report 4831575-6 (Version None)
Quarter: 2005Q4

REPORT INFORMATION
  Report Type: 
  Country: None (occurrence: None)
  Receive Date: 20051114
  Receipt Date: 20051103
  Transmission Date: 20060501
  Serious: Yes (Death, Hospitalization)
  Sender: FDA-Public Use
  Company Number: 2005150678

PATIENT
  Age: 60 Year
  Sex: Female

DRUGS (1)
  1. NORVASC [Suspect]
     Indication: HYPERTENSION
     Dosage: 10 MG (10 MG, 1 IN 1 D) ORAL
     Route: 048

REACTIONS (8)
  - ACTIVATED PARTIAL THROMBOPLASTIN TIME PROLONGED [None]
  - ANAEMIA [None]
  - DIABETES MELLITUS [None]
  - HAEMATOMA [None]
  - HAEMORRHAGE [None]
  - PHARMACEUTICAL PRODUCT COUNTERFEIT [None]
  - PROTHROMBIN TIME PROLONGED [None]
  - TONGUE HAEMATOMA [None]
